FAERS Safety Report 4912220-8 (Version None)
Quarter: 2006Q1

REPORT INFORMATION
  Report Type: 
  Country: None (occurrence: None)
  Receive Date: 20060215
  Receipt Date: 20051012
  Transmission Date: 20060701
  Serious: No
  Sender: FDA-Public Use
  Company Number: 4740684

PATIENT

DRUGS (2)
  1. VALTREX [Suspect]
     Route: 048
  2. ZOVIRAX [Suspect]
     Dosage: 1APP UNKNOWN
     Route: 061

REACTIONS (2)
  - CONDITION AGGRAVATED [None]
  - DRUG INEFFECTIVE [None]
